FAERS Safety Report 19959042 (Version 1)
Quarter: 2021Q4

REPORT INFORMATION
  Report Type: Spontaneous
  Country: US (occurrence: US)
  Receive Date: 20211015
  Receipt Date: 20211015
  Transmission Date: 20220303
  Serious: No
  Sender: FDA-Public Use
  Company Number: US-SA-SAC20211014000449

PATIENT
  Sex: Female

DRUGS (1)
  1. DUPIXENT [Suspect]
     Active Substance: DUPILUMAB
     Indication: Asthma
     Dosage: DOSE -200 MG/ 1.14 ML
     Route: 058
     Dates: start: 20210209

REACTIONS (1)
  - Impaired quality of life [Not Recovered/Not Resolved]
